FAERS Safety Report 25225242 (Version 1)
Quarter: 2025Q2

REPORT INFORMATION
  Report Type: Spontaneous
  Country: US (occurrence: US)
  Receive Date: 20250422
  Receipt Date: 20250422
  Transmission Date: 20250716
  Serious: Yes (Death, Other)
  Sender: AMGEN
  Company Number: US-AMGEN-USASP2024258261

PATIENT

DRUGS (1)
  1. INFLIXIMAB [Suspect]
     Active Substance: INFLIXIMAB
     Indication: Immune-mediated myocarditis
     Route: 065

REACTIONS (9)
  - Death [Fatal]
  - Cardiac death [Fatal]
  - Cardiac failure [Unknown]
  - Arrhythmia [Unknown]
  - Myocardial infarction [Unknown]
  - Transient ischaemic attack [Unknown]
  - Ischaemic stroke [Unknown]
  - Myocarditis [Unknown]
  - Off label use [Unknown]
